FAERS Safety Report 8593091-8 (Version None)
Quarter: 2012Q3

REPORT INFORMATION
  Report Type: 
  Country: None (occurrence: None)
  Receive Date: 20120814
  Receipt Date: 19921110
  Transmission Date: 20120928
  Serious: Yes (Hospitalization)
  Sender: FDA-Public Use
  Company Number: US-ROCHE-1100589

PATIENT
  Age: 48 Year
  Sex: Male

DRUGS (4)
  1. NITROGLYCERIN [Concomitant]
     Route: 042
  2. LOPRESSOR [Concomitant]
     Route: 048
  3. HEPARIN [Concomitant]
     Route: 042
  4. ACTIVASE [Suspect]
     Indication: MYOCARDIAL INFARCTION
     Route: 065

REACTIONS (2)
  - GINGIVAL BLEEDING [None]
  - PAIN [None]
